APPROVED DRUG PRODUCT: TOBRAMYCIN
Active Ingredient: TOBRAMYCIN
Strength: 300MG/4ML
Dosage Form/Route: SOLUTION;INHALATION
Application: A210915 | Product #001 | TE Code: AN
Applicant: TEVA PHARMACEUTICALS USA INC
Approved: Jun 26, 2019 | RLD: No | RS: No | Type: RX